FAERS Safety Report 15244987 (Version 1)
Quarter: 2018Q3

REPORT INFORMATION
  Report Type: Spontaneous
  Country: US (occurrence: US)
  Receive Date: 20180713
  Receipt Date: 20180713
  Transmission Date: 20181010
  Serious: No
  Sender: FDA-Public Use
  Company Number: None

PATIENT
  Age: 45 Year
  Sex: Male

DRUGS (1)
  1. BENOXINATE.FLUORESCEIN [Suspect]
     Active Substance: BENOXINATE\FLUORESCEIN
     Indication: OPHTHALMOLOGICAL EXAMINATION
     Route: 047
     Dates: start: 20180510, end: 20180510

REACTIONS (3)
  - Angioedema [None]
  - Conjunctival oedema [None]
  - Eyelid oedema [None]

NARRATIVE: CASE EVENT DATE: 20180510
